FAERS Safety Report 16184396 (Version 1)
Quarter: 2019Q2

REPORT INFORMATION
  Report Type: Spontaneous
  Country: US (occurrence: US)
  Receive Date: 20190411
  Receipt Date: 20190411
  Transmission Date: 20190711
  Serious: Yes (Other)
  Sender: FDA-Public Use
  Company Number: US-ASTELLAS-2018US046934

PATIENT
  Age: 48 Year
  Sex: Male

DRUGS (2)
  1. PROGRAF [Suspect]
     Active Substance: TACROLIMUS\TACROLIMUS ANHYDROUS
     Indication: RENAL TRANSPLANT
     Dosage: 4 MG (4 CAPS OF 1 MG), TWICE DAILY (4 IN AM AND 4 IN PM)
     Route: 065
     Dates: start: 2013
  2. PROGRAF [Suspect]
     Active Substance: TACROLIMUS\TACROLIMUS ANHYDROUS
     Dosage: 5 MG (5 CAPS OF 1 MG), TWICE DAILY (5 IN AM AND 5 IN PM)
     Route: 065
     Dates: start: 2018

REACTIONS (3)
  - Immunosuppressant drug level decreased [Unknown]
  - Therapeutic product effect incomplete [Unknown]
  - Blood pressure increased [Unknown]
